FAERS Safety Report 5773373-5 (Version None)
Quarter: 2008Q2

REPORT INFORMATION
  Report Type: 
  Country: None (occurrence: None)
  Receive Date: 20080616
  Receipt Date: 20080604
  Transmission Date: 20081010
  Serious: Yes (Hospitalization)
  Sender: FDA-Public Use
  Company Number: JP-JNJFOC-20080602049

PATIENT
  Age: 44 Year
  Sex: Male

DRUGS (5)
  1. REMICADE [Suspect]
     Indication: CROHN'S DISEASE
     Route: 042
  2. LOPERAMIDE HCL [Concomitant]
     Route: 048
  3. OPIUM [Concomitant]
     Route: 048
  4. ALLOID G [Concomitant]
     Route: 048
  5. ELENTAL [Concomitant]
     Route: 048

REACTIONS (2)
  - PNEUMONIA BACTERIAL [None]
  - PULMONARY TUBERCULOSIS [None]
